FAERS Safety Report 4598408-7 (Version None)
Quarter: 2005Q1

REPORT INFORMATION
  Report Type: 
  Country: None (occurrence: None)
  Receive Date: 20050304
  Receipt Date: 20050221
  Transmission Date: 20050727
  Serious: Yes (Other)
  Sender: FDA-Public Use
  Company Number: GB-JNJFOC-20050202276

PATIENT
  Sex: Male

DRUGS (2)
  1. RISPERDAL CONSTA [Suspect]
     Route: 030
  2. RISPERDAL CONSTA [Suspect]
     Indication: DRUG USE FOR UNKNOWN INDICATION
     Dosage: { 2 YEARS
     Route: 030

REACTIONS (3)
  - INJECTION SITE NECROSIS [None]
  - INJECTION SITE ULCER [None]
  - PHARMACEUTICAL PRODUCT COMPLAINT [None]
